FAERS Safety Report 11708237 (Version 3)
Quarter: 2015Q4

REPORT INFORMATION
  Report Type: Report from Study
  Country: CO (occurrence: CO)
  Receive Date: 20151107
  Receipt Date: 20151123
  Transmission Date: 20160304
  Serious: Yes (Death, Hospitalization)
  Sender: FDA-Public Use
  Company Number: CO-ABBVIE-15K-036-1476581-00

PATIENT
  Age: 61 Year
  Sex: Female
  Weight: 44 kg

DRUGS (1)
  1. HUMIRA [Suspect]
     Active Substance: ADALIMUMAB
     Indication: RHEUMATOID ARTHRITIS
     Route: 058
     Dates: start: 20150106, end: 20150919

REACTIONS (12)
  - Lymphadenopathy [Fatal]
  - C-reactive protein increased [Unknown]
  - Bicytopenia [Fatal]
  - Hepatomegaly [Fatal]
  - Cachexia [Fatal]
  - Hepatic cirrhosis [Fatal]
  - Nosocomial infection [Fatal]
  - Histoplasmosis [Fatal]
  - Chills [Not Recovered/Not Resolved]
  - Hyperhidrosis [Not Recovered/Not Resolved]
  - Leukopenia [Fatal]
  - Infection [Fatal]

NARRATIVE: CASE EVENT DATE: 20150701
